FAERS Safety Report 10438853 (Version 1)
Quarter: 2014Q3

REPORT INFORMATION
  Report Type: Spontaneous
  Country: GB (occurrence: GB)
  Receive Date: 20140908
  Receipt Date: 20140908
  Transmission Date: 20150326
  Serious: Yes (Disabling)
  Sender: FDA-Public Use
  Company Number: GB-TEVA-505814ISR

PATIENT
  Age: 55 Year
  Sex: Female
  Weight: 82.55 kg

DRUGS (6)
  1. RAMIPRIL. [Suspect]
     Active Substance: RAMIPRIL
     Indication: HYPERTENSION
     Dosage: STARTED AT 2.5MG AND BUILT UP TO 10MG OVER APPROXIMATELY 11 MONTHS.
     Route: 048
     Dates: start: 20130901, end: 20140814
  2. VENLAFAXINE [Concomitant]
     Active Substance: VENLAFAXINE HYDROCHLORIDE
  3. LANSOPRAZOLE. [Concomitant]
     Active Substance: LANSOPRAZOLE
  4. HORMONIN [Concomitant]
     Active Substance: ESTRADIOL\ESTRIOL\ESTRONE
  5. SIMVASTATIN. [Concomitant]
     Active Substance: SIMVASTATIN
  6. INDAPAMIDE. [Concomitant]
     Active Substance: INDAPAMIDE

REACTIONS (8)
  - Dizziness [Recovered/Resolved]
  - Angioedema [Recovering/Resolving]
  - Cough [Recovering/Resolving]
  - Abdominal pain [Recovering/Resolving]
  - Muscular weakness [Recovering/Resolving]
  - Constipation [Recovering/Resolving]
  - Urticaria chronic [Recovering/Resolving]
  - Diarrhoea [Recovering/Resolving]

NARRATIVE: CASE EVENT DATE: 20130901
